FAERS Safety Report 12440539 (Version 1)
Quarter: 2016Q2

REPORT INFORMATION
  Report Type: Report from Study
  Country: US (occurrence: US)
  Receive Date: 20160606
  Receipt Date: 20160606
  Transmission Date: 20160815
  Serious: Yes (Hospitalization, Other)
  Sender: FDA-Public Use
  Company Number: US-AMGEN-USASL2016028347

PATIENT
  Age: 67 Year
  Sex: Female

DRUGS (7)
  1. MEROPENEM                          /01250502/ [Concomitant]
     Active Substance: MEROPENEM
     Dosage: 1 G, Q8H
  2. MIDAZOLAM [Concomitant]
     Active Substance: MIDAZOLAM\MIDAZOLAM HYDROCHLORIDE
  3. LEVOFLOXACIN. [Concomitant]
     Active Substance: LEVOFLOXACIN
     Dosage: 750 MG, QD
  4. VANCOMYCIN [Concomitant]
     Active Substance: VANCOMYCIN
     Dosage: 1.25 G, Q12H
  5. ACYCLOVIR                          /00587301/ [Concomitant]
     Active Substance: ACYCLOVIR
     Dosage: 400 MG, Q12H
  6. BLINCYTO [Suspect]
     Active Substance: BLINATUMOMAB
     Indication: ACUTE MYELOID LEUKAEMIA
     Dosage: 9 MUG, UNK
     Route: 065
     Dates: start: 20160219
  7. VORICONAZOLE. [Concomitant]
     Active Substance: VORICONAZOLE
     Dosage: 400 MG, Q12H

REACTIONS (1)
  - Pneumonia [Unknown]
